FAERS Safety Report 12894072 (Version 1)
Quarter: 2016Q4

REPORT INFORMATION
  Report Type: Spontaneous
  Country: KR (occurrence: KR)
  Receive Date: 20161028
  Receipt Date: 20161028
  Transmission Date: 20170207
  Serious: Yes (Hospitalization, Other)
  Sender: FDA-Public Use
  Company Number: KR-MYLANLABS-2016M1045881

PATIENT

DRUGS (8)
  1. SEVOFLURANE. [Concomitant]
     Active Substance: SEVOFLURANE
     Indication: ANAESTHESIA
     Dosage: CONTINUOUS INFUSION OF FENTANYL AND 1 VOL% SEVOFLURANE IN A 50% AIR/OXYGEN MIXTURE
     Route: 050
  2. THIOPENTAL SODIUM. [Concomitant]
     Active Substance: THIOPENTAL SODIUM
     Indication: GENERAL ANAESTHESIA
     Dosage: 200 MG
     Route: 065
  3. FENTANYL. [Concomitant]
     Active Substance: FENTANYL
     Indication: ANAESTHESIA
     Dosage: CONTINUOUS INFUSION OF FENTANYL AND 1 VOL% SEVOFLURANE IN A 50% AIR/OXYGEN MIXTURE
     Route: 050
  4. OXYGEN. [Concomitant]
     Active Substance: OXYGEN
     Indication: ANAESTHESIA
     Dosage: CONTINUOUS INFUSION OF FENTANYL AND 1 VOL% SEVOFLURANE IN A 50% AIR/OXYGEN MIXTURE
     Route: 050
  5. MIDAZOLAM [Concomitant]
     Active Substance: MIDAZOLAM\MIDAZOLAM HYDROCHLORIDE
     Indication: GENERAL ANAESTHESIA
     Dosage: 5 MG
     Route: 065
  6. FENTANYL. [Concomitant]
     Active Substance: FENTANYL
     Indication: GENERAL ANAESTHESIA
     Dosage: 100 MCG
     Route: 065
  7. VECURONIUM BROMIDE. [Concomitant]
     Active Substance: VECURONIUM BROMIDE
     Indication: NEUROMUSCULAR BLOCKING THERAPY
     Dosage: 10 MG
     Route: 065
  8. EPINEPHRINE. [Suspect]
     Active Substance: EPINEPHRINE
     Indication: PRODUCT USED FOR UNKNOWN INDICATION
     Dosage: 10 MCG INJECTED TWICE
     Route: 042

REACTIONS (2)
  - Left ventricle outflow tract obstruction [Recovered/Resolved]
  - Systolic anterior motion of mitral valve [Recovered/Resolved]
